FAERS Safety Report 14603494 (Version 1)
Quarter: 2018Q1

REPORT INFORMATION
  Report Type: Spontaneous
  Country: GB (occurrence: GB)
  Receive Date: 20180306
  Receipt Date: 20180306
  Transmission Date: 20180509
  Serious: Yes (Hospitalization, Disabling, Other)
  Sender: FDA-Public Use
  Company Number: GB-CONCORDIA PHARMACEUTICALS INC.-E2B_00010372

PATIENT
  Age: 47 Year
  Sex: Female
  Weight: 74.83 kg

DRUGS (2)
  1. ANTIBIOTICS [Concomitant]
     Active Substance: UNSPECIFIED INGREDIENT
  2. PREDNISOLONE. [Suspect]
     Active Substance: PREDNISOLONE
     Indication: CHRONIC SINUSITIS
     Route: 048
     Dates: start: 20110922, end: 20111003

REACTIONS (6)
  - Pain [Unknown]
  - Tremor [Unknown]
  - Myalgia [Unknown]
  - Coordination abnormal [Unknown]
  - Asthenia [Unknown]
  - Myopathy [Not Recovered/Not Resolved]

NARRATIVE: CASE EVENT DATE: 20110923
